FAERS Safety Report 19358678 (Version 1)
Quarter: 2021Q2

REPORT INFORMATION
  Report Type: Spontaneous
  Country: IT (occurrence: IT)
  Receive Date: 20210602
  Receipt Date: 20210602
  Transmission Date: 20210717
  Serious: Yes (Hospitalization)
  Sender: FDA-Public Use
  Company Number: IT-ALVOGEN-2021-ALVOGEN-117047

PATIENT
  Age: 58 Year
  Sex: Male

DRUGS (4)
  1. UNIPRIL [RAMIPRIL] [Suspect]
     Active Substance: RAMIPRIL
     Indication: HYPERTENSION
     Dosage: AURIGA LABS
     Route: 048
  2. LISINOPRIL AND HYDROCHLOROTHIAZIDE [Suspect]
     Active Substance: HYDROCHLOROTHIAZIDE\LISINOPRIL
     Indication: HYPERTENSION
     Dosage: 20 PLUS 12.5 COMPRESS
     Route: 048
  3. SELOKEN [Concomitant]
     Active Substance: METOPROLOL
     Indication: PRODUCT USED FOR UNKNOWN INDICATION
  4. METFORMIN HYDROCHLORIDE. [Concomitant]
     Active Substance: METFORMIN HYDROCHLORIDE
     Indication: PRODUCT USED FOR UNKNOWN INDICATION

REACTIONS (4)
  - Orthostatic hypotension [Recovering/Resolving]
  - Hypomagnesaemia [Recovering/Resolving]
  - Syncope [Recovering/Resolving]
  - Hyponatraemic syndrome [Recovering/Resolving]

NARRATIVE: CASE EVENT DATE: 20201227
